FAERS Safety Report 16464496 (Version 6)
Quarter: 2019Q3

REPORT INFORMATION
  Report Type: Spontaneous
  Country: US (occurrence: US)
  Receive Date: 20190621
  Receipt Date: 20190911
  Transmission Date: 20191004
  Serious: Yes (Hospitalization, Other)
  Sender: FDA-Public Use
  Company Number: US-ELI_LILLY_AND_COMPANY-US201906009743

PATIENT
  Sex: Female
  Weight: 85.4 kg

DRUGS (6)
  1. TYVASO [Suspect]
     Active Substance: TREPROSTINIL
     Indication: PULMONARY ARTERIAL HYPERTENSION
     Dosage: 3-9 BREATHS
     Route: 055
     Dates: start: 20190522
  2. TADALAFIL. [Suspect]
     Active Substance: TADALAFIL
     Indication: PRODUCT USED FOR UNKNOWN INDICATION
     Dosage: UNK, UNKNOWN
     Route: 065
  3. TYVASO [Suspect]
     Active Substance: TREPROSTINIL
     Dosage: 10-20 BREATHS
     Route: 055
  4. LETAIRIS [Concomitant]
     Active Substance: AMBRISENTAN
     Indication: PRODUCT USED FOR UNKNOWN INDICATION
  5. DILTIAZEM. [Concomitant]
     Active Substance: DILTIAZEM
     Indication: PRODUCT USED FOR UNKNOWN INDICATION
  6. TYVASO [Suspect]
     Active Substance: TREPROSTINIL
     Dosage: 3-9 BREATHS
     Route: 055

REACTIONS (8)
  - Hypersensitivity [Unknown]
  - Pulmonary hypertension [Unknown]
  - Thrombosis [Unknown]
  - Pneumonia [Unknown]
  - Loss of consciousness [Unknown]
  - Epistaxis [Unknown]
  - Syncope [Unknown]
  - Dizziness [Unknown]

NARRATIVE: CASE EVENT DATE: 20190717
